FAERS Safety Report 4447006-4 (Version None)
Quarter: 2004Q3

REPORT INFORMATION
  Report Type: 
  Country: None (occurrence: None)
  Receive Date: 20040812
  Receipt Date: 20040414
  Transmission Date: 20050211
  Serious: No
  Sender: FDA-Public Use
  Company Number: USA040464479

PATIENT
  Age: 76 Year
  Sex: Male
  Weight: 111 kg

DRUGS (6)
  1. CIALIS [Suspect]
     Indication: ERECTILE DYSFUNCTION
     Dosage: 20 MG AS NEEDED
  2. FLOMAX MR(TAMSULOSIN HYDROCHLORIDE) [Concomitant]
  3. PERCODAN [Concomitant]
  4. LODINE [Concomitant]
  5. ZESTRIL [Concomitant]
  6. LANOXIN [Concomitant]

REACTIONS (1)
  - HYPOTENSION [None]
